FAERS Safety Report 18714328 (Version 1)
Quarter: 2021Q1

REPORT INFORMATION
  Report Type: Spontaneous
  Country: CA (occurrence: CA)
  Receive Date: 20210108
  Receipt Date: 20210108
  Transmission Date: 20210419
  Serious: Yes (Other)
  Sender: FDA-Public Use
  Company Number: CA-CELLTRION INC.-2020CA034917

PATIENT

DRUGS (8)
  1. INFLIXIMAB PFIZER (UNKNOWN) [Suspect]
     Active Substance: INFLIXIMAB
     Dosage: UNK
     Route: 065
  2. METHOTREXATE SODIUM. [Suspect]
     Active Substance: METHOTREXATE SODIUM
     Dosage: UNK
  3. ESCITALOPRAM [Concomitant]
     Active Substance: ESCITALOPRAM OXALATE
     Dosage: UNK
  4. REMICADE [Concomitant]
     Active Substance: INFLIXIMAB
     Dosage: UNK
  5. HUMIRA [Suspect]
     Active Substance: ADALIMUMAB
     Dosage: 40 MG, WEEKLY
     Route: 058
  6. BUPROPION. [Concomitant]
     Active Substance: BUPROPION
     Dosage: UNK
  7. HUMIRA [Suspect]
     Active Substance: ADALIMUMAB
     Dosage: UNK
     Route: 058
  8. METHOTREXATE. [Concomitant]
     Active Substance: METHOTREXATE
     Dosage: UNK

REACTIONS (15)
  - Large intestinal obstruction [Unknown]
  - Large intestinal stenosis [Unknown]
  - Mucosal disorder [Unknown]
  - Frequent bowel movements [Unknown]
  - Empyema [Unknown]
  - Gastrointestinal disorder [Unknown]
  - Anal stenosis [Unknown]
  - Anorectal disorder [Unknown]
  - Crohn^s disease [Unknown]
  - Mucosal ulceration [Unknown]
  - Therapeutic product effect incomplete [Unknown]
  - Large intestine anastomosis [Unknown]
  - Adverse drug reaction [Unknown]
  - C-reactive protein decreased [Unknown]
  - Large intestinal ulcer [Unknown]
